FAERS Safety Report 21318229 (Version 2)
Quarter: 2022Q4

REPORT INFORMATION
  Report Type: Spontaneous
  Country: US (occurrence: US)
  Receive Date: 20220911
  Receipt Date: 20221205
  Transmission Date: 20230112
  Serious: No
  Sender: FDA-Public Use
  Company Number: US-SA-SAC20220826001537

PATIENT
  Sex: Male

DRUGS (1)
  1. DUPIXENT [Suspect]
     Active Substance: DUPILUMAB
     Indication: Dermatitis atopic
     Dosage: 300 MG, QOW
     Route: 058
     Dates: start: 20211215

REACTIONS (5)
  - Dermatitis atopic [Unknown]
  - Rash [Unknown]
  - Skin discomfort [Unknown]
  - Sleep disorder [Unknown]
  - Inappropriate schedule of product administration [Unknown]
